FAERS Safety Report 16239613 (Version 2)
Quarter: 2020Q3

REPORT INFORMATION
  Report Type: Spontaneous
  Country: US (occurrence: US)
  Receive Date: 20190425
  Receipt Date: 20200930
  Transmission Date: 20201102
  Serious: Yes (Hospitalization)
  Sender: FDA-Public Use
  Company Number: US-JNJFOC-20190417277

PATIENT
  Age: 23 Year
  Sex: Female

DRUGS (2)
  1. XARELTO [Suspect]
     Active Substance: RIVAROXABAN
     Indication: THROMBOSIS PROPHYLAXIS
  2. XARELTO [Suspect]
     Active Substance: RIVAROXABAN
     Indication: DEEP VEIN THROMBOSIS
     Dosage: 15 MG TWICE DAILY FOR 21 DAYS AND THERE AFTER 20 MG ONCE DAILY
     Route: 048
     Dates: start: 20160108, end: 20160228

REACTIONS (1)
  - Menorrhagia [Recovered/Resolved]

NARRATIVE: CASE EVENT DATE: 20160119
